FAERS Safety Report 9524806 (Version 2)
Quarter: 2014Q4

REPORT INFORMATION
  Report Type: Spontaneous
  Country: US (occurrence: US)
  Receive Date: 20130916
  Receipt Date: 20141205
  Transmission Date: 20150529
  Serious: Yes (Hospitalization)
  Sender: FDA-Public Use
  Company Number: US-BAYER-2013-111123

PATIENT
  Age: 28 Year
  Sex: Female

DRUGS (5)
  1. MIRENA [Suspect]
     Active Substance: LEVONORGESTREL
     Indication: CONTRACEPTION
     Dosage: 20 MCG/24HR, CONT
     Route: 015
     Dates: start: 20101208, end: 20110909
  2. MIRENA [Suspect]
     Active Substance: LEVONORGESTREL
     Indication: MENORRHAGIA
  3. DOXYCYCLINE. [Concomitant]
     Active Substance: DOXYCYCLINE
  4. SYNTHROID [Concomitant]
     Active Substance: LEVOTHYROXINE SODIUM
     Indication: THYROID DISORDER
     Route: 048
  5. FLAGYL [Concomitant]
     Active Substance: METRONIDAZOLE\METRONIDAZOLE HYDROCHLORIDE

REACTIONS (11)
  - Device dislocation [None]
  - Anxiety [None]
  - Device failure [None]
  - Emotional distress [None]
  - Injury [None]
  - Medical device discomfort [None]
  - Device issue [None]
  - Scar [None]
  - Procedural pain [None]
  - Device dislocation [None]
  - Medical device pain [None]

NARRATIVE: CASE EVENT DATE: 20110909
